FAERS Safety Report 13648009 (Version 4)
Quarter: 2018Q1

REPORT INFORMATION
  Report Type: Spontaneous
  Country: US (occurrence: US)
  Receive Date: 20170613
  Receipt Date: 20180222
  Transmission Date: 20180508
  Serious: Yes (Death, Other)
  Sender: FDA-Public Use
  Company Number: US-JNJFOC-20170609857

PATIENT
  Age: 71 Year
  Sex: Male
  Weight: 78.74 kg

DRUGS (37)
  1. LORAZEPAM. [Suspect]
     Active Substance: LORAZEPAM
     Indication: PRODUCT USED FOR UNKNOWN INDICATION
     Route: 065
     Dates: start: 20150821
  2. LEUCOVORIN CALCIUM. [Suspect]
     Active Substance: LEUCOVORIN CALCIUM
     Indication: NEOPLASM MALIGNANT
     Route: 065
     Dates: start: 20170403, end: 20170515
  3. NEUPOGEN [Concomitant]
     Active Substance: FILGRASTIM
     Route: 065
     Dates: start: 20170411, end: 20170412
  4. NOVOLOG [Concomitant]
     Active Substance: INSULIN ASPART
     Dosage: 100 UNITS/ML AS DIRECTED
     Route: 058
  5. ZARXIO [Concomitant]
     Active Substance: FILGRASTIM-SNDZ
     Dosage: 480 MCG (OF 480 MCG/0.8 ML)
     Route: 050
     Dates: start: 20170418, end: 20170517
  6. PRAVASTATIN SODIUM. [Concomitant]
     Active Substance: PRAVASTATIN SODIUM
     Route: 048
     Dates: end: 20160105
  7. OXALIPLATIN. [Suspect]
     Active Substance: OXALIPLATIN
     Indication: NEOPLASM MALIGNANT
     Route: 065
     Dates: start: 20170410, end: 20170410
  8. EMEND [Concomitant]
     Active Substance: APREPITANT
     Route: 065
     Dates: start: 20170403, end: 20170515
  9. POTASSIUM CHLORIDE. [Concomitant]
     Active Substance: POTASSIUM CHLORIDE
     Route: 065
     Dates: start: 20170421, end: 20170503
  10. SODIUM CHLORIDE. [Concomitant]
     Active Substance: SODIUM CHLORIDE
     Dosage: 1000 ML (OF 0.9 %)
     Route: 042
     Dates: start: 20170417, end: 20170517
  11. XARELTO [Suspect]
     Active Substance: RIVAROXABAN
     Indication: DEEP VEIN THROMBOSIS
     Route: 048
     Dates: start: 20151028
  12. DEXAMETHASONE SODIUM PHOSPHATE. [Suspect]
     Active Substance: DEXAMETHASONE SODIUM PHOSPHATE
     Indication: PRODUCT USED FOR UNKNOWN INDICATION
     Route: 065
     Dates: start: 20150827, end: 20170515
  13. ALOXI [Concomitant]
     Active Substance: PALONOSETRON HYDROCHLORIDE
     Route: 065
     Dates: start: 20150917, end: 20170515
  14. DIPHENHYDRAMINE HYDROCHLORIDE. [Concomitant]
     Active Substance: DIPHENHYDRAMINE HYDROCHLORIDE
     Route: 065
     Dates: start: 20170403, end: 20170515
  15. FAMOTIDINE. [Concomitant]
     Active Substance: FAMOTIDINE
     Route: 065
     Dates: start: 20170403, end: 20170515
  16. KLOR-CON [Concomitant]
     Active Substance: POTASSIUM CHLORIDE
     Route: 065
     Dates: start: 20151201
  17. MAGNESIUM CHLORIDE. [Concomitant]
     Active Substance: MAGNESIUM CHLORIDE
     Dosage: 4000 MG (OF 200 MG/ML)
     Route: 050
     Dates: start: 20170426, end: 20170503
  18. XARELTO [Suspect]
     Active Substance: RIVAROXABAN
     Indication: DEEP VEIN THROMBOSIS
     Route: 048
     Dates: end: 20170517
  19. MEGESTROL ACETATE. [Suspect]
     Active Substance: MEGESTROL ACETATE
     Indication: NEOPLASM MALIGNANT
     Route: 065
     Dates: start: 20170330
  20. DURAGESIC [Concomitant]
     Active Substance: FENTANYL
     Route: 065
     Dates: start: 20170411
  21. MAGNESIUM SULFATE. [Concomitant]
     Active Substance: MAGNESIUM SULFATE
     Route: 065
     Dates: start: 20170427, end: 20170427
  22. ONDANSETRON HYDROCHLORIDE. [Concomitant]
     Active Substance: ONDANSETRON HYDROCHLORIDE
     Route: 065
     Dates: start: 20150407
  23. DURAGESIC [Concomitant]
     Active Substance: FENTANYL
     Route: 062
     Dates: start: 20170329, end: 20170411
  24. GABAPENTIN. [Concomitant]
     Active Substance: GABAPENTIN
     Indication: PRODUCT USED FOR UNKNOWN INDICATION
     Route: 048
     Dates: end: 20170206
  25. OXYCODONE HYDROCHLORIDE. [Concomitant]
     Active Substance: OXYCODONE HYDROCHLORIDE
     Route: 065
     Dates: start: 20160913
  26. XANAX [Concomitant]
     Active Substance: ALPRAZOLAM
     Route: 065
     Dates: start: 20170329
  27. DIFLUCAN [Concomitant]
     Active Substance: FLUCONAZOLE
     Dosage: AS DIRECTED
     Route: 048
     Dates: start: 20170202, end: 20170306
  28. NEULASTA [Concomitant]
     Active Substance: PEGFILGRASTIM
     Dosage: 6 MG (OF 6 MG/0.6 ML)
     Route: 058
     Dates: start: 20170425, end: 20170425
  29. OCUVITE [Concomitant]
     Active Substance: VITAMINS
     Route: 048
  30. LANTUS [Concomitant]
     Active Substance: INSULIN GLARGINE
     Dosage: 20 UNITS (OF 100 UNITS/ML)
     Route: 058
     Dates: end: 20170306
  31. GABAPENTIN. [Concomitant]
     Active Substance: GABAPENTIN
     Route: 065
     Dates: start: 20151016
  32. PROCHLORPERAZINE MALEATE. [Suspect]
     Active Substance: PROCHLORPERAZINE MALEATE
     Indication: PRODUCT USED FOR UNKNOWN INDICATION
     Route: 065
     Dates: start: 20150821
  33. FLUOROURACIL. [Suspect]
     Active Substance: FLUOROURACIL
     Indication: NEOPLASM MALIGNANT
     Route: 065
     Dates: start: 20170403, end: 20170515
  34. VALACYCLOVIR HYDROCHLORIDE. [Concomitant]
     Active Substance: VALACYCLOVIR HYDROCHLORIDE
     Route: 065
     Dates: start: 20170330
  35. CALCIUM + VIT D [Concomitant]
     Active Substance: CALCIUM\VITAMIN D
     Route: 048
     Dates: start: 20170202
  36. LISINOPRIL. [Suspect]
     Active Substance: LISINOPRIL
     Indication: PRODUCT USED FOR UNKNOWN INDICATION
     Route: 048
  37. LIDOCAINE/PRILOCAINE [Concomitant]
     Active Substance: LIDOCAINE\PRILOCAINE
     Route: 065
     Dates: start: 20150821

REACTIONS (9)
  - Diarrhoea [Unknown]
  - Infection [Unknown]
  - Hepatic function abnormal [Unknown]
  - Confusional state [Unknown]
  - Hypomagnesaemia [Unknown]
  - Pancreatic carcinoma [Fatal]
  - Hypokalaemia [Unknown]
  - Gastrointestinal haemorrhage [Fatal]
  - Agranulocytosis [Unknown]

NARRATIVE: CASE EVENT DATE: 2016
